FAERS Safety Report 5293509-2 (Version None)
Quarter: 2007Q2

REPORT INFORMATION
  Report Type: 
  Country: None (occurrence: None)
  Receive Date: 20070411
  Receipt Date: 20070404
  Transmission Date: 20071010
  Serious: Yes (Hospitalization)
  Sender: FDA-Public Use
  Company Number: 23166K07USA

PATIENT
  Age: 60 Year
  Sex: Female

DRUGS (3)
  1. AMOXICILLIN [Suspect]
     Indication: DENTAL OPERATION
     Dates: end: 20070201
  2. REBIF [Suspect]
     Indication: MULTIPLE SCLEROSIS
     Dosage: 44MCG THREE TIMES PER WEEK
     Route: 058
     Dates: start: 20050512, end: 20070218
  3. ETODOLAC [Concomitant]
     Indication: DENTAL OPERATION

REACTIONS (7)
  - CHILLS [None]
  - DRUG HYPERSENSITIVITY [None]
  - HYPERSENSITIVITY [None]
  - MULTIPLE SCLEROSIS RELAPSE [None]
  - RASH MACULAR [None]
  - SWELLING FACE [None]
  - TRISMUS [None]
